FAERS Safety Report 4869309-1 (Version None)
Quarter: 2005Q4

REPORT INFORMATION
  Report Type: 
  Country: None (occurrence: None)
  Receive Date: 20051230
  Receipt Date: 20051220
  Transmission Date: 20060501
  Serious: Yes (Other)
  Sender: FDA-Public Use
  Company Number: JP-NOVOPROD-249529

PATIENT
  Age: 75 Year
  Sex: Male
  Weight: 75 kg

DRUGS (11)
  1. INNOLET 30R CHU [Suspect]
     Indication: INSULIN-REQUIRING TYPE II DIABETES MELLITUS
     Route: 058
     Dates: start: 20030101, end: 20031001
  2. NOVOLIN R [Suspect]
     Indication: INSULIN-REQUIRING TYPE II DIABETES MELLITUS
     Route: 058
     Dates: start: 20031101, end: 20050712
  3. NOVOLIN R [Suspect]
     Dates: start: 20051212
  4. NOVOLIN 70/30 [Suspect]
     Indication: INSULIN-REQUIRING TYPE II DIABETES MELLITUS
     Dosage: 54 IU, QD
     Route: 058
     Dates: start: 20050713, end: 20051102
  5. NOVOLIN N [Suspect]
     Indication: INSULIN-REQUIRING TYPE II DIABETES MELLITUS
     Route: 058
     Dates: start: 20051103, end: 20051107
  6. NOVOLIN N [Suspect]
     Dates: start: 20051212
  7. NOVOLOG [Suspect]
     Indication: INSULIN-REQUIRING TYPE II DIABETES MELLITUS
     Dosage: UNK, UNK
     Route: 058
     Dates: start: 20051103, end: 20051205
  8. BASEN [Concomitant]
     Route: 048
  9. AMARYL [Concomitant]
     Route: 048
  10. LASIX [Concomitant]
  11. MELBIN [Concomitant]

REACTIONS (3)
  - ALLERGY TO CHEMICALS [None]
  - ANTI-INSULIN ANTIBODY POSITIVE [None]
  - DIABETES MELLITUS INADEQUATE CONTROL [None]
